FAERS Safety Report 9671392 (Version 1)
Quarter: 2013Q4

REPORT INFORMATION
  Report Type: Spontaneous
  Country: US (occurrence: None)
  Receive Date: 20131106
  Receipt Date: 20131106
  Transmission Date: 20140711
  Serious: Yes (Hospitalization, Disabling)
  Sender: FDA-Public Use
  Company Number: None

PATIENT
  Age: 40 Year
  Sex: Female
  Weight: 75.75 kg

DRUGS (1)
  1. CORTISONE [Suspect]
     Indication: BACK PAIN

REACTIONS (4)
  - Pain [None]
  - Wheelchair user [None]
  - Amnesia [None]
  - Movement disorder [None]
